FAERS Safety Report 13114920 (Version 7)
Quarter: 2017Q3

REPORT INFORMATION
  Report Type: Spontaneous
  Country: KR (occurrence: KR)
  Receive Date: 20170113
  Receipt Date: 20170803
  Transmission Date: 20171127
  Serious: Yes (Hospitalization)
  Sender: FDA-Public Use
  Company Number: KR-009507513-1701KOR004919

PATIENT
  Age: 58 Year
  Sex: Male

DRUGS (26)
  1. DEXAMETHASONE SODIUM PHOSPHATE. [Concomitant]
     Active Substance: DEXAMETHASONE SODIUM PHOSPHATE
     Dosage: 12 MG, ONCE
     Route: 042
     Dates: start: 20160808, end: 20160808
  2. DEXAMETHASONE SODIUM PHOSPHATE. [Concomitant]
     Active Substance: DEXAMETHASONE SODIUM PHOSPHATE
     Dosage: 8 MG, ONCE
     Route: 042
     Dates: start: 20160817, end: 20160817
  3. GEMCITABINE HYDROCHLORIDE. [Concomitant]
     Active Substance: GEMCITABINE HYDROCHLORIDE
     Dosage: 1.89 G, ONCE, CYCLE 5
     Route: 042
     Dates: start: 20160713, end: 20160713
  4. GEMCITABINE HYDROCHLORIDE. [Concomitant]
     Active Substance: GEMCITABINE HYDROCHLORIDE
     Dosage: 1.89 G, ONCE, CYCLE 6
     Route: 042
     Dates: start: 20160808, end: 20160808
  5. DEXAMETHASONE SODIUM PHOSPHATE. [Concomitant]
     Active Substance: DEXAMETHASONE SODIUM PHOSPHATE
     Dosage: 12 MG, ONCE
     Route: 042
     Dates: start: 20160809, end: 20160809
  6. DEXAMETHASONE. [Concomitant]
     Active Substance: DEXAMETHASONE
     Dosage: 8 MG, BID
     Route: 048
     Dates: start: 20160810, end: 20160811
  7. H2 BLOCKER INJECTION [Concomitant]
     Dosage: STRENGTH: 200 MG/2ML; 1 AMP, ONCE
     Route: 042
     Dates: start: 20160713, end: 20160713
  8. GEMCITABINE HYDROCHLORIDE. [Concomitant]
     Active Substance: GEMCITABINE HYDROCHLORIDE
     Dosage: 1.89 G, ONCE, CYCLE 6
     Route: 042
     Dates: start: 20160817, end: 20160817
  9. DEXAMETHASONE SODIUM PHOSPHATE. [Concomitant]
     Active Substance: DEXAMETHASONE SODIUM PHOSPHATE
     Dosage: 8 MG, ONCE
     Route: 042
     Dates: start: 20160713, end: 20160713
  10. DEXAMETHASONE. [Concomitant]
     Active Substance: DEXAMETHASONE
     Dosage: 8 MG, BID
     Route: 048
     Dates: start: 20160706, end: 20160707
  11. ALOXI [Concomitant]
     Active Substance: PALONOSETRON HYDROCHLORIDE
     Dosage: 5 ML, ONCE
     Route: 042
     Dates: start: 20160808, end: 20160808
  12. H2 BLOCKER INJECTION [Concomitant]
     Dosage: STRENGTH: 200 MG/2ML; 1 AMP,QD
     Route: 042
     Dates: start: 20160808, end: 20160809
  13. EMEND (FOSAPREPITANT DIMEGLUMINE) [Suspect]
     Active Substance: FOSAPREPITANT DIMEGLUMINE
     Dosage: 150 MG, ONCE
     Route: 042
     Dates: start: 20160808, end: 20160808
  14. DEXAMETHASONE. [Concomitant]
     Active Substance: DEXAMETHASONE
     Indication: PROPHYLAXIS
     Dosage: 4 MG, BID
     Route: 048
     Dates: start: 20160705, end: 20160705
  15. CISPLATIN. [Concomitant]
     Active Substance: CISPLATIN
     Indication: LUNG NEOPLASM MALIGNANT
     Dosage: 141.75 MG, ONCE, CYCLE 5
     Route: 042
     Dates: start: 20160704, end: 20160704
  16. GEMCITABINE HYDROCHLORIDE. [Concomitant]
     Active Substance: GEMCITABINE HYDROCHLORIDE
     Indication: LUNG NEOPLASM MALIGNANT
     Dosage: 1.89 G, ONCE, CYCLE 5
     Route: 042
     Dates: start: 20160704, end: 20160704
  17. H2 BLOCKER INJECTION [Concomitant]
     Dosage: STRENGTH: 200 MG/2ML; 1 AMP, ONCE
     Route: 042
     Dates: start: 20160817, end: 20160817
  18. EBASTINE [Concomitant]
     Active Substance: EBASTINE
     Indication: RHINITIS ALLERGIC
     Dosage: 1 TABLET, QD
     Route: 048
     Dates: start: 2016
  19. EMEND (FOSAPREPITANT DIMEGLUMINE) [Suspect]
     Active Substance: FOSAPREPITANT DIMEGLUMINE
     Indication: PROPHYLAXIS OF NAUSEA AND VOMITING
     Dosage: 150 MG, ONCE
     Route: 042
     Dates: start: 20160704, end: 20160704
  20. H2 BLOCKER INJECTION [Concomitant]
     Indication: PREMEDICATION
     Dosage: STRENGTH: 200 MG/2ML; 1 AMP, ONCE
     Route: 042
     Dates: start: 20160704, end: 20160704
  21. CIMET [Concomitant]
     Dosage: 1 TABLET (200 MG), QD
     Route: 048
     Dates: start: 20160810, end: 20160811
  22. CISPLATIN. [Concomitant]
     Active Substance: CISPLATIN
     Dosage: 140 MG, ONCE, CYCLE 6
     Route: 042
     Dates: start: 20160808, end: 20160808
  23. CIMET [Concomitant]
     Indication: PROPHYLAXIS
     Dosage: 1 TABLET (200 MG), QD
     Route: 048
     Dates: start: 20160705, end: 20160719
  24. DEXAMETHASONE SODIUM PHOSPHATE. [Concomitant]
     Active Substance: DEXAMETHASONE SODIUM PHOSPHATE
     Indication: PREMEDICATION
     Dosage: 12 MG, ONCE
     Route: 042
     Dates: start: 20160704, end: 20160704
  25. ALOXI [Concomitant]
     Active Substance: PALONOSETRON HYDROCHLORIDE
     Indication: PREMEDICATION
     Dosage: 5 ML, ONCE
     Route: 042
     Dates: start: 20160704, end: 20160704
  26. BACLAN [Concomitant]
     Indication: PAIN
     Dosage: 10 MG, TID
     Route: 048
     Dates: start: 20160705, end: 20160719

REACTIONS (1)
  - Chest pain [Recovered/Resolved]

NARRATIVE: CASE EVENT DATE: 20160708
